FAERS Safety Report 22953702 (Version 7)
Quarter: 2024Q1

REPORT INFORMATION
  Report Type: Report from Study
  Country: MX (occurrence: MX)
  Receive Date: 20230918
  Receipt Date: 20240307
  Transmission Date: 20240409
  Serious: Yes (Hospitalization, Other)
  Sender: FDA-Public Use
  Company Number: MX-TAKEDA-2023TUS089986

PATIENT
  Age: 25 Year
  Sex: Female
  Weight: 55 kg

DRUGS (3)
  1. PONATINIB [Suspect]
     Active Substance: PONATINIB
     Indication: Philadelphia positive acute lymphocytic leukaemia
     Dosage: 45 MILLIGRAM, QD
     Route: 048
     Dates: start: 20230828
  2. PONATINIB [Suspect]
     Active Substance: PONATINIB
     Dosage: 45 MILLIGRAM, QD
     Route: 048
     Dates: end: 20240111
  3. PONATINIB [Suspect]
     Active Substance: PONATINIB
     Dosage: 45 MILLIGRAM, QD
     Route: 048
     Dates: start: 20240206, end: 20240214

REACTIONS (8)
  - Acute lymphocytic leukaemia recurrent [Recovering/Resolving]
  - Colitis [Recovering/Resolving]
  - Gastrointestinal disorder [Recovering/Resolving]
  - Haematemesis [Recovered/Resolved]
  - Abdominal pain upper [Recovered/Resolved]
  - Haemoglobin decreased [Recovering/Resolving]
  - Platelet count decreased [Recovering/Resolving]
  - Abdominal pain [Recovered/Resolved]

NARRATIVE: CASE EVENT DATE: 20231001
